FAERS Safety Report 8940530 (Version 2)
Quarter: 2012Q4

REPORT INFORMATION
  Report Type: 
  Country: US (occurrence: US)
  Receive Date: 20121130
  Receipt Date: 20121214
  Transmission Date: 20130627
  Serious: No
  Sender: FDA-Public Use
  Company Number: US-009507513-1211USA012907

PATIENT
  Age: 56 Year
  Sex: Female
  Weight: 86.17 kg

DRUGS (1)
  1. CLARITIN-D 12 HOUR [Suspect]
     Indication: MEDICAL OBSERVATION
     Dosage: 5 mg, bid
     Route: 048
     Dates: start: 20121101, end: 20121110

REACTIONS (1)
  - Drug ineffective [Unknown]
